FAERS Safety Report 10502619 (Version 1)
Quarter: 2014Q4

REPORT INFORMATION
  Report Type: Spontaneous
  Country: FR (occurrence: FR)
  Receive Date: 20141007
  Receipt Date: 20141007
  Transmission Date: 20150528
  Serious: Yes (Hospitalization, Other)
  Sender: FDA-Public Use
  Company Number: FR-BRISTOL-MYERS SQUIBB COMPANY-21453865

PATIENT
  Age: 81 Year
  Sex: Female

DRUGS (2)
  1. CEFTRIAXONE. [Suspect]
     Active Substance: CEFTRIAXONE
     Indication: PNEUMONITIS
     Dosage: 06-JUL-2014
     Route: 042
     Dates: start: 20140620, end: 20140706
  2. COUMADINE [Suspect]
     Active Substance: WARFARIN SODIUM
     Indication: PNEUMONITIS
     Route: 048
     Dates: end: 20140706

REACTIONS (6)
  - Anaemia [Recovered/Resolved]
  - Pneumonitis [Recovered/Resolved]
  - Respiratory distress [Recovered/Resolved]
  - Hypoprothrombinaemia [Recovered/Resolved]
  - Haematoma [Recovered/Resolved]
  - Renal failure [Recovered/Resolved]

NARRATIVE: CASE EVENT DATE: 20140706
